FAERS Safety Report 8354848-1 (Version None)
Quarter: 2012Q2

REPORT INFORMATION
  Report Type: 
  Country: None (occurrence: None)
  Receive Date: 20120511
  Receipt Date: 20110610
  Transmission Date: 20120825
  Serious: Yes (Other)
  Sender: FDA-Public Use
  Company Number: US-ALEXION-A201001554

PATIENT
  Sex: Male

DRUGS (2)
  1. SOLIRIS [Suspect]
     Indication: PAROXYSMAL NOCTURNAL HAEMOGLOBINURIA
     Dosage: 600 MG, SINGLE
     Route: 042
     Dates: start: 20101119, end: 20101119
  2. SOLIRIS [Suspect]
     Indication: THROMBOSIS PROPHYLAXIS

REACTIONS (4)
  - FISTULA [None]
  - INCISION SITE PAIN [None]
  - INCISION SITE OEDEMA [None]
  - POST PROCEDURAL HAEMORRHAGE [None]
